FAERS Safety Report 15436705 (Version 1)
Quarter: 2018Q3

REPORT INFORMATION
  Report Type: Spontaneous
  Country: US (occurrence: US)
  Receive Date: 20180927
  Receipt Date: 20180927
  Transmission Date: 20181010
  Serious: Yes (Other)
  Sender: FDA-Public Use
  Company Number: US-ENDO PHARMACEUTICALS INC-2018-041365

PATIENT
  Age: 72 Year
  Sex: Male
  Weight: 80.73 kg

DRUGS (2)
  1. XIAFLEX [Suspect]
     Active Substance: COLLAGENASE CLOSTRIDIUM HISTOLYTICUM
     Dosage: UNK UNKNOWN, UNKNOWN
     Route: 026
  2. XIAFLEX [Suspect]
     Active Substance: COLLAGENASE CLOSTRIDIUM HISTOLYTICUM
     Indication: DUPUYTREN^S CONTRACTURE
     Dosage: UNK UNKNOWN, SINGLE
     Route: 026
     Dates: start: 20180911, end: 20180911

REACTIONS (4)
  - Product quality issue [Unknown]
  - Injection site swelling [Unknown]
  - Injection site infection [Recovered/Resolved]
  - Injection site erythema [Unknown]

NARRATIVE: CASE EVENT DATE: 20180919
